FAERS Safety Report 9111304 (Version 1)
Quarter: 2013Q1

REPORT INFORMATION
  Report Type: Spontaneous
  Country: US (occurrence: US)
  Receive Date: 20130219
  Receipt Date: 20130219
  Transmission Date: 20140127
  Serious: No
  Sender: FDA-Public Use
  Company Number: US-BRISTOL-MYERS SQUIBB COMPANY-16567042

PATIENT
  Age: 47 Year
  Sex: Female
  Weight: 56.69 kg

DRUGS (3)
  1. ORENCIA [Suspect]
     Indication: RHEUMATOID ARTHRITIS
     Dosage: 3 TREATMENTS,INF:02MAY2012
     Route: 042
     Dates: start: 20120321
  2. NASONEX [Concomitant]
     Indication: PAIN
  3. TRILEPTAL [Concomitant]
     Indication: PAIN

REACTIONS (1)
  - Adverse event [Recovered/Resolved]
